FAERS Safety Report 5930368-6 (Version None)
Quarter: 2008Q4

REPORT INFORMATION
  Report Type: 
  Country: None (occurrence: None)
  Receive Date: 20081023
  Receipt Date: 20060817
  Transmission Date: 20090506
  Serious: Yes (Life-Threatening, Other)
  Sender: FDA-Public Use
  Company Number: 2006AL002529

PATIENT
  Age: 85 Year
  Sex: Female

DRUGS (5)
  1. CITALOPRAM HYDROBROMIDE [Suspect]
     Indication: DEPRESSION
     Dosage: 10 MG QD PO
     Route: 048
     Dates: start: 20060301, end: 20060701
  2. TIZANIDINE HCL [Concomitant]
  3. ACETYLSALICYLIC ACID SRT [Concomitant]
  4. DIPYRIDAMOLE [Concomitant]
  5. SIMVASTATIN [Concomitant]

REACTIONS (3)
  - DRUG INTERACTION [None]
  - HYPOKALAEMIA [None]
  - ILEUS PARALYTIC [None]
